FAERS Safety Report 16764033 (Version 3)
Quarter: 2020Q1

REPORT INFORMATION
  Report Type: Spontaneous
  Country: BE (occurrence: BE)
  Receive Date: 20190902
  Receipt Date: 20200228
  Transmission Date: 20200409
  Serious: Yes (Other)
  Sender: FDA-Public Use
  Company Number: PHHY2019BE193820

PATIENT
  Age: 67 Year
  Sex: Female

DRUGS (2)
  1. IBRANCE [Suspect]
     Active Substance: PALBOCICLIB
     Indication: BREAST CANCER METASTATIC
     Dosage: 125 MG, 1X/DAY
     Route: 065
     Dates: start: 20190729, end: 20190812
  2. FEMARA [Suspect]
     Active Substance: LETROZOLE
     Indication: BREAST CANCER METASTATIC
     Dosage: UNK
     Route: 065
     Dates: start: 20190729

REACTIONS (10)
  - Anaemia [Recovering/Resolving]
  - C-reactive protein increased [Unknown]
  - Blood urea increased [Unknown]
  - Gamma-glutamyltransferase increased [Unknown]
  - Liver function test increased [Unknown]
  - Thrombocytopenia [Not Recovered/Not Resolved]
  - Blood alkaline phosphatase increased [Unknown]
  - Neutropenia [Not Recovered/Not Resolved]
  - Blood lactate dehydrogenase increased [Unknown]
  - Aspartate aminotransferase increased [Unknown]

NARRATIVE: CASE EVENT DATE: 2019
